FAERS Safety Report 7447840-2 (Version None)
Quarter: 2011Q2

REPORT INFORMATION
  Report Type: 
  Country: None (occurrence: None)
  Receive Date: 20110429
  Receipt Date: 20100524
  Transmission Date: 20111010
  Serious: No
  Sender: FDA-Public Use
  Company Number: US-ASTRAZENECA-2009UW03064

PATIENT
  Age: 35 Year
  Sex: Female
  Weight: 45.8 kg

DRUGS (1)
  1. NEXIUM [Suspect]
     Indication: GASTROOESOPHAGEAL REFLUX DISEASE
     Route: 048
     Dates: start: 20080501

REACTIONS (4)
  - WEIGHT DECREASED [None]
  - DRUG INEFFECTIVE [None]
  - PAIN [None]
  - DRUG DOSE OMISSION [None]
